FAERS Safety Report 18199976 (Version 5)
Quarter: 2021Q1

REPORT INFORMATION
  Report Type: Report from Study
  Country: None (occurrence: US)
  Receive Date: 20200827
  Receipt Date: 20210227
  Transmission Date: 20210419
  Serious: Yes (Other)
  Sender: FDA-Public Use
  Company Number: US-ABBVIE-20K-163-3370190-00

PATIENT
  Sex: Female
  Weight: 81.72 kg

DRUGS (3)
  1. HUMIRA [Suspect]
     Active Substance: ADALIMUMAB
     Indication: PSORIATIC ARTHROPATHY
     Dosage: CITRATE FREE
     Route: 058
  2. HUMIRA [Suspect]
     Active Substance: ADALIMUMAB
     Indication: RHEUMATOID ARTHRITIS
     Dosage: CITRATE FREE
     Route: 058
     Dates: start: 2016
  3. HUMIRA [Suspect]
     Active Substance: ADALIMUMAB
     Dosage: CITRATE FREE
     Route: 058

REACTIONS (17)
  - Pain in extremity [Not Recovered/Not Resolved]
  - Musculoskeletal pain [Unknown]
  - Bone marrow disorder [Unknown]
  - Joint injury [Not Recovered/Not Resolved]
  - Arthralgia [Unknown]
  - Spinal cord compression [Not Recovered/Not Resolved]
  - Constipation [Recovered/Resolved]
  - Hypoaesthesia [Recovered/Resolved with Sequelae]
  - Pain in extremity [Unknown]
  - Ligament rupture [Recovering/Resolving]
  - Ligament rupture [Unknown]
  - Chills [Unknown]
  - Pyrexia [Unknown]
  - Lumbar spinal stenosis [Unknown]
  - Arthralgia [Recovered/Resolved with Sequelae]
  - Paraesthesia [Unknown]
  - Sciatica [Not Recovered/Not Resolved]
